FAERS Safety Report 7580022-2 (Version None)
Quarter: 2011Q2

REPORT INFORMATION
  Report Type: 
  Country: None (occurrence: None)
  Receive Date: 20110629
  Receipt Date: 20110620
  Transmission Date: 20111010
  Serious: Yes (Hospitalization)
  Sender: FDA-Public Use
  Company Number: FR-BRISTOL-MYERS SQUIBB COMPANY-15848385

PATIENT
  Age: 70 Year
  Sex: Male

DRUGS (1)
  1. HYDREA [Suspect]
     Indication: ESSENTIAL THROMBOCYTHAEMIA
     Dosage: 1DF: 3 TO 2 CAPS/DAY, ALTERNATIVELY
     Route: 048
     Dates: start: 20070101, end: 20110218

REACTIONS (3)
  - SUPERINFECTION [None]
  - SKIN ULCER [None]
  - MACROCYTOSIS [None]
